FAERS Safety Report 18110461 (Version 3)
Quarter: 2021Q1

REPORT INFORMATION
  Report Type: Spontaneous
  Country: US (occurrence: US)
  Receive Date: 20200804
  Receipt Date: 20210218
  Transmission Date: 20210419
  Serious: Yes (Other)
  Sender: FDA-Public Use
  Company Number: US-PFIZER INC-2020293307

PATIENT
  Age: 90 Year
  Sex: Female

DRUGS (1)
  1. EUCRISA [Suspect]
     Active Substance: CRISABOROLE
     Dosage: UNK, 1X/DAY (2%/ 60G TUBE/ APPLY A SMALL AMOUNT AFFECTED AREA ONCE A DAY)
     Route: 061

REACTIONS (2)
  - Dementia [Unknown]
  - Off label use [Unknown]
